FAERS Safety Report 18435968 (Version 1)
Quarter: 2020Q4

REPORT INFORMATION
  Report Type: Spontaneous
  Country: US (occurrence: US)
  Receive Date: 20201028
  Receipt Date: 20201028
  Transmission Date: 20210114
  Serious: Yes (Hospitalization)
  Sender: FDA-Public Use
  Company Number: None

PATIENT
  Sex: Female

DRUGS (8)
  1. AMOX/K CLAV, [Concomitant]
  2. CLINDAMYCIN, [Concomitant]
  3. SPIRONOLACT [Concomitant]
     Active Substance: SPIRONOLACTONE
  4. HYDROCO/APAP, [Concomitant]
  5. PREDNISONE, [Concomitant]
  6. RIFAMPIN. [Concomitant]
     Active Substance: RIFAMPIN
  7. HUMIRA [Suspect]
     Active Substance: ADALIMUMAB
     Indication: HIDRADENITIS
     Dosage: ?          OTHER DOSE:1 PEN;?
     Route: 058
     Dates: start: 20200125
  8. METFORMIN, [Concomitant]

REACTIONS (4)
  - Infection [None]
  - Pain [None]
  - Therapy interrupted [None]
  - Condition aggravated [None]
